FAERS Safety Report 7023639-6 (Version None)
Quarter: 2010Q3

REPORT INFORMATION
  Report Type: 
  Country: None (occurrence: None)
  Receive Date: 20100929
  Receipt Date: 20100929
  Transmission Date: 20110219
  Serious: No
  Sender: FDA-Public Use
  Company Number: None

PATIENT
  Age: 80 Year
  Sex: Male

DRUGS (1)
  1. DORZOLAMIDE [Suspect]
     Indication: GLAUCOMA
     Dosage: INSTILL 1 DROP IN THE LEFT EYE TWICE A DAY
     Dates: start: 20080101

REACTIONS (4)
  - EYE IRRITATION [None]
  - EYE PAIN [None]
  - HEADACHE [None]
  - PRODUCT SUBSTITUTION ISSUE [None]
